FAERS Safety Report 4810476-3 (Version None)
Quarter: 2005Q4

REPORT INFORMATION
  Report Type: 
  Country: None (occurrence: None)
  Receive Date: 20051024
  Receipt Date: 20051011
  Transmission Date: 20060501
  Serious: Yes (Disabling, Other)
  Sender: FDA-Public Use
  Company Number: 2005083788

PATIENT
  Age: 46 Year
  Sex: Male
  Weight: 86.1834 kg

DRUGS (3)
  1. VIAGRA [Suspect]
     Indication: ERECTILE DYSFUNCTION
     Dosage: 50 MG (50 MG), ORAL
     Route: 048
     Dates: start: 20020701, end: 20050101
  2. ALLOPURINOL [Concomitant]
  3. ALL OTHER THERAPEUTIC PRODUCTS (ALL OTHER THERAPEUTIC PRODUCTS) [Concomitant]

REACTIONS (8)
  - ANXIETY [None]
  - BLINDNESS UNILATERAL [None]
  - CATARACT [None]
  - CHEST PAIN [None]
  - DEPRESSION [None]
  - EYE PAIN [None]
  - STRESS [None]
  - VISION BLURRED [None]
